FAERS Safety Report 16883042 (Version 1)
Quarter: 2019Q4

REPORT INFORMATION
  Report Type: Spontaneous
  Country: JP (occurrence: JP)
  Receive Date: 20191004
  Receipt Date: 20191004
  Transmission Date: 20200122
  Serious: Yes (Death, Other)
  Sender: FDA-Public Use
  Company Number: JP-TEVA-2019-JP-1115428

PATIENT
  Age: 84 Year
  Sex: Female

DRUGS (5)
  1. SITAGLIPTIN PHOSPHATE HYDRATE [Suspect]
     Active Substance: SITAGLIPTIN PHOSPHATE
     Indication: DIABETES MELLITUS
     Dosage: 25 MILLIGRAM DAILY;
     Route: 065
  2. RITUXIMAB. [Suspect]
     Active Substance: RITUXIMAB
     Indication: FACTOR VIII DEFICIENCY
     Route: 065
  3. INSULIN [Concomitant]
     Active Substance: INSULIN NOS
     Indication: DIABETES MELLITUS
     Route: 065
  4. RECOMBINANT ACTIVATED FACTOR VII [Concomitant]
     Indication: FACTOR VIII DEFICIENCY
     Route: 065
  5. PREDNISOLONE. [Suspect]
     Active Substance: PREDNISOLONE
     Indication: FACTOR VIII DEFICIENCY
     Route: 065

REACTIONS (6)
  - Acquired haemophilia [Recovered/Resolved]
  - Multiple organ dysfunction syndrome [Fatal]
  - Clostridium difficile colitis [Fatal]
  - Haemorrhage subcutaneous [Recovered/Resolved]
  - Factor VIII deficiency [Recovered/Resolved]
  - Anaemia [Recovered/Resolved]
